FAERS Safety Report 19042821 (Version 3)
Quarter: 2021Q3

REPORT INFORMATION
  Report Type: Report from Study
  Country: JP (occurrence: JP)
  Receive Date: 20210323
  Receipt Date: 20210826
  Transmission Date: 20211014
  Serious: Yes (Life-Threatening, Hospitalization, Other)
  Sender: FDA-Public Use
  Company Number: JP-JNJFOC-A-CH2018-183791

PATIENT
  Age: 4 Month
  Sex: Male
  Weight: 5.38 kg

DRUGS (48)
  1. EPOPROSTENOL ACT [Suspect]
     Active Substance: EPOPROSTENOL
     Dosage: 46 NG/KG, PER MIN
     Route: 042
     Dates: start: 20180627, end: 20180628
  2. EPOPROSTENOL ACT [Suspect]
     Active Substance: EPOPROSTENOL
     Dosage: 1? 44 NG/KG, PER MIN
     Route: 042
     Dates: start: 20180629, end: 20180927
  3. UPTRAVI [Suspect]
     Active Substance: SELEXIPAG
     Dosage: 0.06 MG, BID
     Route: 048
     Dates: start: 20180701, end: 20180705
  4. UPTRAVI [Suspect]
     Active Substance: SELEXIPAG
     Route: 048
     Dates: start: 20190316, end: 20190330
  5. FUROSEMIDE. [Concomitant]
     Active Substance: FUROSEMIDE
     Dosage: 3 MG, QD
     Dates: start: 20180704, end: 20180706
  6. OPSUMIT [Suspect]
     Active Substance: MACITENTAN
     Indication: PULMONARY ARTERIAL HYPERTENSION
     Dosage: 0.5 MG, BID
     Route: 048
     Dates: start: 20180523, end: 20190408
  7. EPOPROSTENOL ACT [Suspect]
     Active Substance: EPOPROSTENOL
     Dosage: 4?20 NG/KG/MIN
     Route: 042
     Dates: start: 20180524, end: 20180604
  8. FUROSEMIDE. [Concomitant]
     Active Substance: FUROSEMIDE
     Dosage: 2MGX3?6TIMES/DAY
     Route: 042
     Dates: start: 20180604, end: 20180613
  9. ALDACTONE A [Concomitant]
     Active Substance: SPIRONOLACTONE
     Dosage: 21 MG, QD
     Dates: start: 20181005, end: 20181018
  10. NITRIC OXIDE. [Concomitant]
     Active Substance: NITRIC OXIDE
     Dosage: UNK
     Route: 055
     Dates: end: 20180625
  11. UPTRAVI [Suspect]
     Active Substance: SELEXIPAG
     Indication: PULMONARY ARTERIAL HYPERTENSION
     Dosage: 0.02 MG, BID
     Route: 048
     Dates: start: 20180621, end: 20180625
  12. UPTRAVI [Suspect]
     Active Substance: SELEXIPAG
     Dosage: 0.18 MG, BID
     Route: 048
     Dates: start: 20180914, end: 20180918
  13. FUROSEMIDE. [Concomitant]
     Active Substance: FUROSEMIDE
     Dosage: 1?2MGX3?6TIMES/DAY
     Route: 042
     Dates: start: 20180704, end: 20180805
  14. ALDACTONE A [Concomitant]
     Active Substance: SPIRONOLACTONE
     Dosage: 22 MG, QD
     Dates: start: 20180802, end: 20181004
  15. SAMSCA [Concomitant]
     Active Substance: TOLVAPTAN
     Indication: CARDIAC FAILURE
     Dosage: 0.5?0.75MGX2?3TIMES/DAY
     Route: 048
     Dates: start: 20180701
  16. WARFARIN [Concomitant]
     Active Substance: WARFARIN
     Indication: THROMBOSIS PROPHYLAXIS
     Dosage: 0.15?0.3MGX2TIMES/DAY
     Route: 048
     Dates: start: 20180614
  17. OXYGEN. [Concomitant]
     Active Substance: OXYGEN
     Route: 055
  18. UPTRAVI [Suspect]
     Active Substance: SELEXIPAG
     Dosage: 0.1 MG, BID
     Route: 048
     Dates: start: 20180711, end: 20180715
  19. UPTRAVI [Suspect]
     Active Substance: SELEXIPAG
     Dosage: 0.16 MG, BID
     Route: 048
     Dates: start: 20180726, end: 20180913
  20. UPTRAVI [Suspect]
     Active Substance: SELEXIPAG
     Dosage: 0.2 MG, BID
     Route: 048
     Dates: start: 20180919
  21. REVATIO [Suspect]
     Active Substance: SILDENAFIL CITRATE
     Dosage: 11.2 MG, QD
     Route: 048
     Dates: start: 20180808, end: 20180813
  22. ADCIRCA [Concomitant]
     Active Substance: TADALAFIL
     Dosage: 2.5 MG, QD
     Route: 048
     Dates: start: 20180806, end: 20180810
  23. FUROSEMIDE. [Concomitant]
     Active Substance: FUROSEMIDE
     Dosage: 2?7.3MGX3TIMES/DAY
     Dates: start: 20180517
  24. OPSUMIT [Suspect]
     Active Substance: MACITENTAN
     Dosage: 0.7 MG, BID
     Route: 048
     Dates: start: 20190409
  25. UPTRAVI [Suspect]
     Active Substance: SELEXIPAG
     Dosage: 0.04 MG, BID
     Route: 048
     Dates: start: 20180626, end: 20180630
  26. ADCIRCA [Concomitant]
     Active Substance: TADALAFIL
     Route: 048
     Dates: start: 20190325
  27. FUROSEMIDE. [Concomitant]
     Active Substance: FUROSEMIDE
     Dosage: 22 MG, QD
     Dates: start: 20180802, end: 20181004
  28. FUROSEMIDE. [Concomitant]
     Active Substance: FUROSEMIDE
     Dosage: 21 MG, QD
     Dates: start: 20181005, end: 20181018
  29. UPTRAVI [Suspect]
     Active Substance: SELEXIPAG
     Route: 048
     Dates: start: 20190331
  30. REVATIO [Suspect]
     Active Substance: SILDENAFIL CITRATE
     Indication: PULMONARY ARTERIAL HYPERTENSION
     Dosage: 0.45?3.6 MG, QD
     Route: 048
     Dates: start: 20180524, end: 20180813
  31. ADCIRCA [Concomitant]
     Active Substance: TADALAFIL
     Indication: PULMONARY ARTERIAL HYPERTENSION
     Dosage: 8 MG, QD
     Route: 048
     Dates: start: 20180810, end: 20190324
  32. FUROSEMIDE. [Concomitant]
     Active Substance: FUROSEMIDE
     Dosage: UNK
     Dates: start: 20180604, end: 20180805
  33. ALDACTONE A [Concomitant]
     Active Substance: SPIRONOLACTONE
     Indication: CARDIAC FAILURE
     Dosage: 15 MG, QD
     Dates: start: 20180701, end: 20180802
  34. ALDACTONE A [Concomitant]
     Active Substance: SPIRONOLACTONE
     Dosage: 2?7.3MGX3TIMES/DAY
     Route: 048
     Dates: start: 20180517
  35. HYDROCHLOROTHIAZIDE. [Concomitant]
     Active Substance: HYDROCHLOROTHIAZIDE
     Indication: CARDIAC FAILURE
     Dosage: 1.5?7.5MGX2TIMES/DAY
     Dates: start: 20180801, end: 20181115
  36. EPOPROSTENOL ACT [Suspect]
     Active Substance: EPOPROSTENOL
     Indication: PULMONARY ARTERIAL HYPERTENSION
     Dosage: 2 NG/KG, PER MIN
     Route: 042
     Dates: start: 20180523, end: 20180524
  37. UPTRAVI [Suspect]
     Active Substance: SELEXIPAG
     Dosage: 0.08 MG, BID
     Route: 048
     Dates: start: 20180706, end: 20180710
  38. UPTRAVI [Suspect]
     Active Substance: SELEXIPAG
     Dosage: 0.12 MG, BID
     Route: 048
     Dates: start: 20180716, end: 20180720
  39. REVATIO [Suspect]
     Active Substance: SILDENAFIL CITRATE
     Dosage: 21.6 MG, QD
     Route: 048
     Dates: end: 20180808
  40. FUROSEMIDE. [Concomitant]
     Active Substance: FUROSEMIDE
     Indication: CARDIAC FAILURE
     Dosage: 15 MG, QD
     Dates: start: 20180701, end: 20180802
  41. FUROSEMIDE. [Concomitant]
     Active Substance: FUROSEMIDE
     Dosage: 18 MG, QD
     Dates: start: 20181019, end: 20181216
  42. FUROSEMIDE. [Concomitant]
     Active Substance: FUROSEMIDE
     Dosage: 15 MG, QD
     Dates: start: 20181217
  43. FUROSEMIDE. [Concomitant]
     Active Substance: FUROSEMIDE
     Dosage: 0.215MG/HR
     Route: 042
     Dates: start: 20180613, end: 20180701
  44. ALDACTONE A [Concomitant]
     Active Substance: SPIRONOLACTONE
     Dosage: 15 MG, QD
     Dates: start: 20181217
  45. EPOPROSTENOL ACT [Suspect]
     Active Substance: EPOPROSTENOL
     Dosage: 48?50NG/KG/MIN
     Route: 042
     Dates: start: 20180604, end: 20180626
  46. UPTRAVI [Suspect]
     Active Substance: SELEXIPAG
     Dosage: 0.14 MG, BID
     Route: 048
     Dates: start: 20180721, end: 20180725
  47. UPTRAVI [Suspect]
     Active Substance: SELEXIPAG
     Route: 048
     Dates: start: 20190311, end: 20190315
  48. ALDACTONE A [Concomitant]
     Active Substance: SPIRONOLACTONE
     Dosage: 18 MG, QD
     Dates: start: 20181019, end: 20181216

REACTIONS (15)
  - Respiratory failure [Recovering/Resolving]
  - Oxygen saturation decreased [Recovering/Resolving]
  - Condition aggravated [Recovering/Resolving]
  - Pyrexia [Recovering/Resolving]
  - Anaemia [Recovering/Resolving]
  - Pleural effusion [Recovering/Resolving]
  - Transfusion [Unknown]
  - Dyspnoea [Recovering/Resolving]
  - Platelet count decreased [Recovering/Resolving]
  - Blood pressure decreased [Recovering/Resolving]
  - Thoracic cavity drainage [Unknown]
  - White blood cell count increased [Recovered/Resolved]
  - Pulmonary congestion [Recovering/Resolving]
  - Device related infection [Recovered/Resolved]
  - Off label use [Unknown]

NARRATIVE: CASE EVENT DATE: 20180524
